FAERS Safety Report 10333134 (Version 1)
Quarter: 2014Q3

REPORT INFORMATION
  Report Type: Spontaneous
  Country: US (occurrence: US)
  Receive Date: 20140722
  Receipt Date: 20140722
  Transmission Date: 20150326
  Serious: No
  Sender: FDA-Public Use
  Company Number: US-SA-2014SA014345

PATIENT
  Age: 45 Year
  Sex: Female

DRUGS (1)
  1. AMBIEN CR [Suspect]
     Active Substance: ZOLPIDEM TARTRATE
     Indication: SLEEP DISORDER
     Dosage: TAKEN TO- COUPLE OF MONTHS LATER
     Route: 065
     Dates: start: 2007

REACTIONS (1)
  - Middle insomnia [Recovered/Resolved]
